FAERS Safety Report 4870296-0 (Version None)
Quarter: 2005Q4

REPORT INFORMATION
  Report Type: 
  Country: None (occurrence: None)
  Receive Date: 20051223
  Receipt Date: 20051205
  Transmission Date: 20060501
  Serious: Yes (Death)
  Sender: FDA-Public Use
  Company Number: 6018985

PATIENT

DRUGS (2)
  1. LEVOTHYROXINE SODIUM [Suspect]
     Indication: DRUG EXPOSURE DURING PREGNANCY
     Dosage: 175 MCG (175 MCG, 1 D) TRANSPLACENTAL
     Route: 064
  2. SULFASALAZINE [Suspect]
     Indication: DRUG EXPOSURE DURING PREGNANCY
     Dosage: 4,00 DOSAGE FORMS (1 DOSAGE FORMS, 4 IN 1 D) TRANSPLACENTAL
     Route: 064
     Dates: end: 20050427

REACTIONS (4)
  - ABORTION INDUCED [None]
  - ANENCEPHALY [None]
  - DRUG EXPOSURE DURING PREGNANCY [None]
  - HORSESHOE KIDNEY [None]
